FAERS Safety Report 21471182 (Version 1)
Quarter: 2022Q4

REPORT INFORMATION
  Report Type: Spontaneous
  Country: US (occurrence: None)
  Receive Date: 20221017
  Receipt Date: 20221017
  Transmission Date: 20230113
  Serious: Yes (Hospitalization, Other)
  Sender: FDA-Public Use
  Company Number: None

PATIENT
  Age: 38 Year
  Sex: Female
  Weight: 67.5 kg

DRUGS (4)
  1. BOTOX COSMETIC [Suspect]
     Active Substance: ONABOTULINUMTOXINA
     Indication: Skin wrinkling
     Dosage: OTHER STRENGTH : 50 UNITS TOTAL;?
     Route: 058
  2. UNSPECIFIED INGREDIENT [Concomitant]
     Active Substance: UNSPECIFIED INGREDIENT
  3. DEVICE [Concomitant]
     Active Substance: DEVICE
  4. VITAMINS [Concomitant]
     Active Substance: VITAMINS

REACTIONS (23)
  - Dizziness [None]
  - Disorientation [None]
  - Sensory loss [None]
  - Discomfort [None]
  - Bladder disorder [None]
  - Dry mouth [None]
  - Salivary gland disorder [None]
  - Neck pain [None]
  - Chest pain [None]
  - Headache [None]
  - Arthralgia [None]
  - Balance disorder [None]
  - Hypertension [None]
  - Visual impairment [None]
  - Facial asymmetry [None]
  - Dysstasia [None]
  - Gait disturbance [None]
  - Motor dysfunction [None]
  - Anxiety [None]
  - Panic attack [None]
  - Neuralgia [None]
  - Quality of life decreased [None]
  - Balance disorder [None]

NARRATIVE: CASE EVENT DATE: 20220523
